FAERS Safety Report 9401470 (Version 1)
Quarter: 2013Q3

REPORT INFORMATION
  Report Type: Spontaneous
  Country: BR (occurrence: BR)
  Receive Date: 20130716
  Receipt Date: 20130716
  Transmission Date: 20140515
  Serious: Yes (Hospitalization, Other)
  Sender: FDA-Public Use
  Company Number: BR-AMGEN-BRASP2013049222

PATIENT
  Age: 60 Year
  Sex: Female
  Weight: 48 kg

DRUGS (6)
  1. ENBREL [Suspect]
     Indication: RHEUMATOID ARTHRITIS
     Dosage: 50 MG, 1XWEEK
     Route: 065
     Dates: start: 201207
  2. ARAVA [Concomitant]
     Indication: RHEUMATOID ARTHRITIS
     Dosage: UNK
     Dates: start: 201301
  3. DEFLAZACORT [Concomitant]
     Indication: RHEUMATOID ARTHRITIS
     Dosage: UNK
     Dates: start: 2012
  4. METHOTREXATE [Concomitant]
     Indication: RHEUMATOID ARTHRITIS
     Dosage: UNK
     Dates: start: 2012
  5. TORSILAX [Concomitant]
     Indication: RHEUMATOID ARTHRITIS
     Dosage: UNK
     Dates: start: 201301
  6. ANGIPRESS CD [Concomitant]
     Indication: HYPERTENSION
     Dosage: UNK
     Dates: start: 2012

REACTIONS (1)
  - Gastrointestinal disorder [Unknown]
